FAERS Safety Report 4323074-5 (Version None)
Quarter: 2004Q1

REPORT INFORMATION
  Report Type: 
  Country: None (occurrence: None)
  Receive Date: 20040322
  Receipt Date: 20040310
  Transmission Date: 20041129
  Serious: Yes (Hospitalization, Other)
  Sender: FDA-Public Use
  Company Number: 2004017257

PATIENT
  Sex: Male

DRUGS (5)
  1. LIPITOR [Suspect]
     Indication: ILL-DEFINED DISORDER
  2. ISOPHANE INSULIN [Concomitant]
  3. CLOPIDOGREL BISULFATE [Concomitant]
  4. METFORMIN HYDROCHLORIDE [Concomitant]
  5. RAMIPRIL [Concomitant]

REACTIONS (1)
  - MYOCARDIAL INFARCTION [None]
